FAERS Safety Report 16648325 (Version 1)
Quarter: 2019Q3

REPORT INFORMATION
  Report Type: Report from Study
  Country: BE (occurrence: BE)
  Receive Date: 20190730
  Receipt Date: 20190730
  Transmission Date: 20191004
  Serious: Yes (Hospitalization, Other)
  Sender: FDA-Public Use
  Company Number: BE-BAYER-2019-120817

PATIENT
  Sex: Male

DRUGS (2)
  1. ARLEVERTAN [Concomitant]
     Active Substance: CINNARIZINE\DIMENHYDRINATE
     Indication: VERTIGO
     Dosage: 3X20 MG
     Dates: start: 20190716
  2. STIVARGA [Suspect]
     Active Substance: REGORAFENIB
     Indication: COLORECTAL CANCER
     Dosage: 120 MG DAILY
     Dates: start: 20180602, end: 20190720

REACTIONS (17)
  - Dizziness [Not Recovered/Not Resolved]
  - Dysphonia [None]
  - Fall [None]
  - Dizziness [None]
  - Slow speech [None]
  - Palmar-plantar erythrodysaesthesia syndrome [Recovering/Resolving]
  - Weight decreased [None]
  - Paraesthesia oral [Not Recovered/Not Resolved]
  - Tremor [None]
  - Transient ischaemic attack [None]
  - Fatigue [Not Recovered/Not Resolved]
  - Colorectal cancer [None]
  - Gait disturbance [None]
  - Change of bowel habit [None]
  - Cerebral infarction [None]
  - Post-traumatic pain [None]
  - Vision blurred [None]

NARRATIVE: CASE EVENT DATE: 20190622
